FAERS Safety Report 25723767 (Version 1)
Quarter: 2025Q3

REPORT INFORMATION
  Report Type: Report from Study
  Country: US (occurrence: US)
  Receive Date: 20250825
  Receipt Date: 20250825
  Transmission Date: 20251020
  Serious: Yes (Other)
  Sender: NOVARTIS
  Company Number: US-002147023-NVSC2025US104673

PATIENT
  Age: 45 Year
  Sex: Female
  Weight: 51 kg

DRUGS (3)
  1. KISQALI [Suspect]
     Active Substance: RIBOCICLIB SUCCINATE
     Indication: Breast cancer
     Route: 048
  2. KISQALI [Suspect]
     Active Substance: RIBOCICLIB SUCCINATE
     Route: 048
     Dates: start: 20241028, end: 20250805
  3. LETROZOLE [Concomitant]
     Active Substance: LETROZOLE
     Indication: Product used for unknown indication
     Dosage: 2.5 MG, QD
     Route: 065

REACTIONS (10)
  - Liver disorder [Recovering/Resolving]
  - Liver function test increased [Unknown]
  - Blood potassium decreased [Unknown]
  - Anion gap decreased [Unknown]
  - Blood glucose increased [Unknown]
  - Protein total increased [Unknown]
  - Alanine aminotransferase increased [Unknown]
  - Anion gap increased [Unknown]
  - Aspartate aminotransferase increased [Unknown]
  - Blood alkaline phosphatase increased [Unknown]

NARRATIVE: CASE EVENT DATE: 20250217
